FAERS Safety Report 7061644-4 (Version None)
Quarter: 2010Q4

REPORT INFORMATION
  Report Type: 
  Country: None (occurrence: None)
  Receive Date: 20101026
  Receipt Date: 20101020
  Transmission Date: 20110411
  Serious: No
  Sender: FDA-Public Use
  Company Number: US-ABBOTT-10P-163-0679630-00

PATIENT
  Sex: Female
  Weight: 99.88 kg

DRUGS (5)
  1. LUPRON DEPOT [Suspect]
     Indication: UTERINE LEIOMYOMA
     Route: 030
     Dates: start: 20090401, end: 20091001
  2. LUPRON DEPOT [Suspect]
     Route: 030
     Dates: start: 20100901
  3. M.V.I. [Concomitant]
     Indication: VITAMIN SUPPLEMENTATION
  4. IRON [Concomitant]
     Indication: ANAEMIA
  5. ASPIRIN [Concomitant]
     Indication: PROPHYLAXIS
     Route: 048
     Dates: start: 20090401

REACTIONS (4)
  - HEADACHE [None]
  - HOT FLUSH [None]
  - MALAISE [None]
  - MENORRHAGIA [None]
